FAERS Safety Report 21172166 (Version 1)
Quarter: 2022Q3

REPORT INFORMATION
  Report Type: Spontaneous
  Country: US (occurrence: US)
  Receive Date: 20220804
  Receipt Date: 20220804
  Transmission Date: 20221027
  Serious: No
  Sender: FDA-Public Use
  Company Number: US-BAXTER-2022BAX016303

PATIENT

DRUGS (3)
  1. SEVOFLURANE [Suspect]
     Active Substance: SEVOFLURANE
     Dosage: 0.7-1.0 MAC
     Route: 065
     Dates: start: 20220725
  2. SUFENTANIL [Suspect]
     Active Substance: SUFENTANIL
     Dosage: INFUSION OF 250 MCG AT 100 ML/HOUR VIA CENTRAL LINES, (250 ML INFUSION WITH SUFENTANIL AND MIDAZOLAM
     Route: 042
     Dates: start: 20220725
  3. MIDAZOLAM [Suspect]
     Active Substance: MIDAZOLAM
     Dosage: INFUSION OF 5 MG AT 100 ML/HOUR VIA CENTRAL LINES, (250 ML INFUSION WITH SUFENTANIL AND MIDAZOLAM)
     Route: 065
     Dates: start: 20220725

REACTIONS (2)
  - Systolic hypertension [Recovering/Resolving]
  - Device infusion issue [Unknown]

NARRATIVE: CASE EVENT DATE: 20220725
